FAERS Safety Report 18036469 (Version 1)
Quarter: 2020Q3

REPORT INFORMATION
  Report Type: Spontaneous
  Country: US (occurrence: US)
  Receive Date: 20200717
  Receipt Date: 20200717
  Transmission Date: 20201103
  Serious: Yes (Other)
  Sender: FDA-Public Use
  Company Number: US-BRISTOL-MYERS SQUIBB COMPANY-BMS-2020-054551

PATIENT
  Sex: Female
  Weight: 59.42 kg

DRUGS (2)
  1. COUMADIN [Suspect]
     Active Substance: WARFARIN SODIUM
     Dosage: 1.25MG ON MONDAY, WEDNESDAY AND FRIDAY., QD
     Route: 048
  2. COUMADIN [Suspect]
     Active Substance: WARFARIN SODIUM
     Indication: ATRIAL FIBRILLATION
     Dosage: 2.5MG TABLET ON TUESDAY,THURSDAY, SATURDAY AND SUNDAY, QD
     Route: 048

REACTIONS (2)
  - Hypertension [Unknown]
  - Cerebrovascular accident [Unknown]
